FAERS Safety Report 8511426-9 (Version None)
Quarter: 2012Q3

REPORT INFORMATION
  Report Type: 
  Country: None (occurrence: None)
  Receive Date: 20120716
  Receipt Date: 20120710
  Transmission Date: 20120928
  Serious: No
  Sender: FDA-Public Use
  Company Number: US-BAYER-2012-069928

PATIENT
  Age: 70 Year
  Sex: Female

DRUGS (2)
  1. ANTIHYPERTENSIVES [Concomitant]
  2. ALEVE (CAPLET) [Suspect]
     Indication: ARTHRALGIA
     Dosage: TWO TABLETS IN THE MORNING AND ONE TABLET AT NIGHT
     Route: 048

REACTIONS (1)
  - BLOOD PRESSURE INCREASED [None]
